FAERS Safety Report 9066979 (Version 1)
Quarter: 2013Q1

REPORT INFORMATION
  Report Type: Report from Study
  Country: AR (occurrence: AR)
  Receive Date: 20130214
  Receipt Date: 20130214
  Transmission Date: 20140127
  Serious: Yes (Hospitalization)
  Sender: FDA-Public Use
  Company Number: AR-AMGEN-US291023

PATIENT
  Age: 83 Year
  Sex: Male

DRUGS (7)
  1. DARBEPOETIN ALFA [Suspect]
     Indication: CARDIAC FAILURE
     Dosage: UNK UNK, Q2WK
     Route: 058
     Dates: start: 20080428
  2. FUROSEMIDE [Concomitant]
     Dosage: 40 MG, QD
     Route: 065
  3. SPIRONOLACTONE [Concomitant]
     Dosage: 12.5 MG, QD
     Route: 065
  4. CARVEDILOL [Concomitant]
     Dosage: 12.5 MG, QD
     Route: 065
  5. ENALAPRIL [Concomitant]
     Dosage: .5 MG, QD
     Route: 065
  6. DIGOXIN [Concomitant]
     Dosage: .25 MG, QD
     Route: 065
  7. AMIODARONE [Concomitant]
     Dosage: 400 MG, QD
     Route: 048

REACTIONS (1)
  - Presyncope [Recovered/Resolved]
